FAERS Safety Report 8129866-9 (Version None)
Quarter: 2012Q1

REPORT INFORMATION
  Report Type: 
  Country: None (occurrence: None)
  Receive Date: 20120103
  Receipt Date: 20111120
  Transmission Date: 20120608
  Serious: No
  Sender: FDA-Public Use
  Company Number: AE-2011-003825

PATIENT
  Age: 53 Year
  Sex: Female
  Weight: 57.1532 kg

DRUGS (7)
  1. RIBAVIRIN [Concomitant]
  2. LORAZEPAM [Concomitant]
  3. CELEXA [Concomitant]
  4. OMEPRAZOLE [Concomitant]
  5. GABAPENTIN [Concomitant]
  6. INCIVEK [Suspect]
     Dosage: 2250 MG (750 MG, 3 IN 1 D), ORAL
     Route: 048
     Dates: start: 20111031, end: 20111109
  7. PEGINTERFERON (PEGINTERFERON ALFA-2A) [Concomitant]

REACTIONS (4)
  - URTICARIA [None]
  - PRURITUS [None]
  - SKIN LESION [None]
  - RASH [None]
